FAERS Safety Report 8010094-2 (Version None)
Quarter: 2011Q4

REPORT INFORMATION
  Report Type: 
  Country: None (occurrence: None)
  Receive Date: 20111228
  Receipt Date: 20111220
  Transmission Date: 20120403
  Serious: Yes (Hospitalization)
  Sender: FDA-Public Use
  Company Number: IT-BRISTOL-MYERS SQUIBB COMPANY-16305898

PATIENT
  Age: 85 Year
  Sex: Female

DRUGS (4)
  1. COUMADIN [Suspect]
     Indication: ATRIAL FIBRILLATION
     Dosage: 1DF:1 UNIT
     Dates: start: 20110101, end: 20111118
  2. LASIX [Concomitant]
     Dosage: 1DF:2 UNITS LASIX 25 MG TABS
  3. BI-EUGLUCON [Concomitant]
     Dosage: 1DF:400 MG+2.5MG  1UNIT
  4. LANOXIN [Concomitant]
     Dosage: TABS 1UNIT

REACTIONS (2)
  - INTERNATIONAL NORMALISED RATIO INCREASED [None]
  - IRON DEFICIENCY ANAEMIA [None]
